FAERS Safety Report 22981684 (Version 2)
Quarter: 2023Q4

REPORT INFORMATION
  Report Type: Spontaneous
  Country: US (occurrence: US)
  Receive Date: 20230925
  Receipt Date: 20231204
  Transmission Date: 20240110
  Serious: No
  Sender: FDA-Public Use
  Company Number: US-JNJFOC-20230927016

PATIENT
  Sex: Female

DRUGS (2)
  1. ZYRTEC [Suspect]
     Active Substance: CETIRIZINE HYDROCHLORIDE
     Indication: Product used for unknown indication
     Dosage: I TOOK 3 YESTERDAY.
     Route: 065
     Dates: start: 20230911
  2. CETIRIZINE HYDROCHLORIDE [Suspect]
     Active Substance: CETIRIZINE HYDROCHLORIDE
     Indication: Product used for unknown indication
     Dosage: I TOOK 3 YESTERDAY.
     Route: 065
     Dates: start: 20230911

REACTIONS (2)
  - Overdose [Unknown]
  - Product label issue [Unknown]

NARRATIVE: CASE EVENT DATE: 20230911
